FAERS Safety Report 5148299-0 (Version None)
Quarter: 2006Q4

REPORT INFORMATION
  Report Type: 
  Country: None (occurrence: None)
  Receive Date: 20061106
  Receipt Date: 20061026
  Transmission Date: 20070319
  Serious: Yes (Hospitalization)
  Sender: FDA-Public Use
  Company Number: 2006-02705

PATIENT
  Age: 65 Year
  Sex: Female

DRUGS (8)
  1. VELCADE [Suspect]
     Indication: MULTIPLE MYELOMA
     Dosage: INTRAVENOUS
     Route: 042
  2. DOXORUBICIN HCL [Suspect]
     Indication: MULTIPLE MYELOMA
  3. DEXAMETHASONE [Suspect]
     Indication: MULTIPLE MYELOMA
  4. MELPHALAN (MELPHALAN) VIAL [Suspect]
     Indication: MULTIPLE MYELOMA
  5. JODID (POTASSIUM IODINE) [Concomitant]
  6. PANTOPRAZOLE SODIUM [Concomitant]
  7. LYRICA [Concomitant]
  8. ACYCLOVIR [Concomitant]

REACTIONS (4)
  - ARTHRITIS REACTIVE [None]
  - EAR PAIN [None]
  - FEBRILE INFECTION [None]
  - STEM CELL TRANSPLANT [None]
